FAERS Safety Report 12902412 (Version 2)
Quarter: 2016Q4

REPORT INFORMATION
  Report Type: Spontaneous
  Country: TW (occurrence: TW)
  Receive Date: 20161102
  Receipt Date: 20161120
  Transmission Date: 20170207
  Serious: Yes (Death, Hospitalization)
  Sender: FDA-Public Use
  Company Number: TW-ROCHE-1849618

PATIENT
  Age: 18 Year
  Sex: Female

DRUGS (5)
  1. CEFAZOLIN [Concomitant]
     Active Substance: CEFAZOLIN
     Dosage: Q8H
     Route: 042
  2. SULFASALAZINE. [Concomitant]
     Active Substance: SULFASALAZINE
     Route: 048
  3. PREDNISOLONE. [Concomitant]
     Active Substance: PREDNISOLONE
     Route: 048
  4. ACTEMRA [Suspect]
     Active Substance: TOCILIZUMAB
     Indication: PRODUCT USED FOR UNKNOWN INDICATION
     Dosage: MOST RECENT DOSE ON 06/OCT/2016
     Route: 042
     Dates: start: 20160805
  5. ETORICOXIB [Concomitant]
     Active Substance: ETORICOXIB
     Route: 048

REACTIONS (2)
  - Hepatitis acute [Unknown]
  - Sepsis [Fatal]

NARRATIVE: CASE EVENT DATE: 20161022
